FAERS Safety Report 8012112-4 (Version None)
Quarter: 2011Q4

REPORT INFORMATION
  Report Type: 
  Country: None (occurrence: None)
  Receive Date: 20111228
  Receipt Date: 20111222
  Transmission Date: 20120403
  Serious: No
  Sender: FDA-Public Use
  Company Number: US-BAYER-2011-123771

PATIENT
  Age: 88 Year
  Sex: Male

DRUGS (5)
  1. ALEVE (CAPLET) [Suspect]
     Dosage: 2 TABLETS BID
     Route: 048
     Dates: start: 20100101
  2. TOPROL-XL [Concomitant]
  3. AVODART [Concomitant]
  4. NEURONTIN [Concomitant]
  5. PREVACID [Concomitant]

REACTIONS (4)
  - THROAT IRRITATION [None]
  - NO ADVERSE EVENT [None]
  - FOREIGN BODY [None]
  - BURNING SENSATION [None]
